FAERS Safety Report 6244691-1 (Version None)
Quarter: 2009Q2

REPORT INFORMATION
  Report Type: 
  Country: None (occurrence: None)
  Receive Date: 20090623
  Receipt Date: 20090619
  Transmission Date: 20091009
  Serious: Yes (Life-Threatening, Hospitalization)
  Sender: FDA-Public Use
  Company Number: B0563009A

PATIENT
  Age: 49 Year
  Sex: Female

DRUGS (6)
  1. BUPROPION HYDROCHLORIDE [Suspect]
     Indication: DEPRESSION
     Dosage: 150 TABLET
  2. TRAZODONE HYDROCHLORIDE [Concomitant]
  3. THIAMINE HYDROCHLORIDE [Concomitant]
  4. LEVOTHYROXINE SODIUM [Concomitant]
  5. OMEPRAZOLE [Concomitant]
  6. DIAZEPAM [Concomitant]

REACTIONS (8)
  - AMNESIA [None]
  - BLOOD PRESSURE SYSTOLIC DECREASED [None]
  - CARDIAC FAILURE [None]
  - GRAND MAL CONVULSION [None]
  - INCONTINENCE [None]
  - INTENTIONAL OVERDOSE [None]
  - POISONING [None]
  - POSTICTAL STATE [None]
